FAERS Safety Report 16422586 (Version 2)
Quarter: 2019Q2

REPORT INFORMATION
  Report Type: Spontaneous
  Country: BE (occurrence: BE)
  Receive Date: 20190612
  Receipt Date: 20190621
  Transmission Date: 20190711
  Serious: Yes (Other)
  Sender: FDA-Public Use
  Company Number: BE-MYLANLABS-2019M1054085

PATIENT
  Age: 15 Year
  Sex: Female

DRUGS (6)
  1. ESTRADIOL. [Suspect]
     Active Substance: ESTRADIOL
     Indication: HORMONE REPLACEMENT THERAPY
     Dosage: UNK
  2. BUSULFAN. [Suspect]
     Active Substance: BUSULFAN
     Indication: SICKLE CELL ANAEMIA
     Dosage: 16 MILLIGRAM/KILOGRAM
     Route: 065
     Dates: start: 1992
  3. ETHINYLESTRADIOL [Suspect]
     Active Substance: ETHINYL ESTRADIOL
     Indication: HORMONE REPLACEMENT THERAPY
     Dosage: 25 MICROGRAM, QD
     Route: 065
  4. DYDROGESTERONE [Suspect]
     Active Substance: DYDROGESTERONE
     Indication: HORMONE REPLACEMENT THERAPY
     Dosage: 10 DAYS/MONTH
  5. NORETHISTERONE [Suspect]
     Active Substance: NORETHINDRONE
     Indication: HORMONE REPLACEMENT THERAPY
     Dosage: UNK
     Route: 065
  6. CYCLOPHOSPHAMIDE. [Suspect]
     Active Substance: CYCLOPHOSPHAMIDE
     Indication: SICKLE CELL ANAEMIA
     Dosage: 200 MILLIGRAM/KILOGRAM
     Route: 065
     Dates: start: 1992

REACTIONS (2)
  - Ovarian atrophy [Recovered/Resolved]
  - Ovarian failure [Recovered/Resolved]

NARRATIVE: CASE EVENT DATE: 1992
